FAERS Safety Report 7511668-5 (Version None)
Quarter: 2011Q2

REPORT INFORMATION
  Report Type: 
  Country: None (occurrence: None)
  Receive Date: 20110531
  Receipt Date: 20110510
  Transmission Date: 20111010
  Serious: No
  Sender: FDA-Public Use
  Company Number: US-B.I. PHARMACEUTICALS,INC./RIDGEFIELD-2011-BP-08504BP

PATIENT
  Age: 75 Year
  Sex: Female

DRUGS (7)
  1. SYNTHROID [Concomitant]
     Indication: HYPOTHYROIDISM
     Route: 048
  2. PRADAXA [Suspect]
     Indication: ATRIAL FIBRILLATION
     Dosage: 300 MG
     Route: 048
     Dates: start: 20110302
  3. SYNTHROID [Concomitant]
     Indication: THYROID DISORDER
  4. AMBIEN [Concomitant]
     Indication: SLEEP DISORDER
     Route: 048
  5. AMOXICILLIN [Concomitant]
     Indication: PROPHYLAXIS
     Route: 048
     Dates: start: 20110226, end: 20110307
  6. ATIVAN [Concomitant]
     Indication: ANXIETY
     Route: 048
  7. LIDODERM [Concomitant]
     Indication: BACK PAIN
     Route: 062

REACTIONS (7)
  - VISION BLURRED [None]
  - HEADACHE [None]
  - THROAT IRRITATION [None]
  - ABDOMINAL PAIN UPPER [None]
  - DIZZINESS [None]
  - FATIGUE [None]
  - NAUSEA [None]
